FAERS Safety Report 25703772 (Version 1)
Quarter: 2025Q3

REPORT INFORMATION
  Report Type: Spontaneous
  Country: EU (occurrence: EU)
  Receive Date: 20250820
  Receipt Date: 20250820
  Transmission Date: 20251021
  Serious: Yes (Other)
  Sender: AMGEN
  Company Number: EU-AMGEN-DEUSP2025161696

PATIENT

DRUGS (2)
  1. ETANERCEPT [Suspect]
     Active Substance: ETANERCEPT
     Indication: Juvenile idiopathic arthritis
     Route: 065
  2. ADALIMUMAB [Suspect]
     Active Substance: ADALIMUMAB
     Indication: Juvenile idiopathic arthritis
     Route: 065

REACTIONS (6)
  - Juvenile idiopathic arthritis [Unknown]
  - Infection [Unknown]
  - Adverse event [Unknown]
  - Uveitis [Unknown]
  - Drug effect less than expected [Unknown]
  - Drug ineffective [Unknown]
